FAERS Safety Report 25415448 (Version 1)
Quarter: 2025Q2

REPORT INFORMATION
  Report Type: Report from Study
  Country: US (occurrence: US)
  Receive Date: 20250610
  Receipt Date: 20250610
  Transmission Date: 20250716
  Serious: Yes (Hospitalization)
  Sender: ABBVIE
  Company Number: US-ABBVIE-5932241

PATIENT
  Sex: Female

DRUGS (1)
  1. HUMIRA [Suspect]
     Active Substance: ADALIMUMAB
     Indication: Product used for unknown indication
     Route: 058
     Dates: start: 20240601

REACTIONS (7)
  - Staphylococcal infection [Unknown]
  - Gastrointestinal disorder [Unknown]
  - Colitis [Unknown]
  - Pneumonia [Unknown]
  - Carotid artery occlusion [Unknown]
  - Cardiac disorder [Unknown]
  - Illness [Unknown]
